FAERS Safety Report 6465253-7 (Version None)
Quarter: 2009Q4

REPORT INFORMATION
  Report Type: 
  Country: None (occurrence: None)
  Receive Date: 20091201
  Receipt Date: 20091117
  Transmission Date: 20100525
  Serious: Yes (Hospitalization)
  Sender: FDA-Public Use
  Company Number: US-MYLANLABS-2009S1019911

PATIENT
  Age: 56 Year
  Sex: Male

DRUGS (3)
  1. METHADONE HCL [Interacting]
     Route: 048
  2. METHADONE HCL [Interacting]
     Route: 048
  3. CIPROFLOXACIN [Suspect]

REACTIONS (2)
  - DRUG INTERACTION [None]
  - TORSADE DE POINTES [None]
